FAERS Safety Report 7070243-X (Version None)
Quarter: 2010Q4

REPORT INFORMATION
  Report Type: 
  Country: None (occurrence: None)
  Receive Date: 20101028
  Receipt Date: 20100929
  Transmission Date: 20110411
  Serious: No
  Sender: FDA-Public Use
  Company Number: US-WYE-H17880410

PATIENT
  Sex: Female
  Weight: 52.21 kg

DRUGS (9)
  1. EFFEXOR [Interacting]
     Indication: ANXIETY
     Dates: start: 19960101, end: 19960101
  2. EFFEXOR [Interacting]
     Indication: DEPRESSION
     Dosage: DOSAGE RANGE FROM 37.5 MG TO 225 MG
     Dates: start: 19960101
  3. SYNTHROID [Concomitant]
  4. RIFAMPICIN [Interacting]
     Dosage: UNKNOWN
  5. ATIVAN [Concomitant]
  6. BONIVA [Concomitant]
  7. EFFEXOR XR [Suspect]
     Indication: ANXIETY
  8. EFFEXOR XR [Suspect]
     Indication: DEPRESSION
  9. REMERON [Concomitant]

REACTIONS (6)
  - DRUG EFFECT DECREASED [None]
  - DRUG INTERACTION [None]
  - DRUG WITHDRAWAL SYNDROME [None]
  - INTENTIONAL DRUG MISUSE [None]
  - LIVER FUNCTION TEST ABNORMAL [None]
  - WRONG TECHNIQUE IN DRUG USAGE PROCESS [None]
